FAERS Safety Report 6935706-3 (Version None)
Quarter: 2010Q3

REPORT INFORMATION
  Report Type: 
  Country: None (occurrence: None)
  Receive Date: 20100823
  Receipt Date: 20100810
  Transmission Date: 20110219
  Serious: Yes (Hospitalization, Other)
  Sender: FDA-Public Use
  Company Number: PHHY2010US16650

PATIENT
  Sex: Male
  Weight: 88 kg

DRUGS (13)
  1. EXJADE [Suspect]
     Indication: MYELODYSPLASTIC SYNDROME
     Dosage: 1500 MG/DAY
     Route: 048
     Dates: start: 20091118
  2. EXJADE [Suspect]
     Indication: IRON OVERLOAD
  3. CHEMOTHERAPEUTICS NOS [Concomitant]
  4. DRUG THERAPY NOS [Concomitant]
  5. ASPIRIN [Concomitant]
  6. LISINOPRIL [Concomitant]
  7. ISOSORBIDE [Concomitant]
  8. OMEPRAZOLE [Concomitant]
  9. HYDROXYZINE [Concomitant]
  10. METOPROLOL [Concomitant]
  11. FOLIC ACID [Concomitant]
  12. CLARITIN [Concomitant]
  13. ASCORBIC ACID [Concomitant]

REACTIONS (5)
  - ANGINA PECTORIS [None]
  - BLOOD CREATININE INCREASED [None]
  - GLOMERULAR FILTRATION RATE DECREASED [None]
  - NAUSEA [None]
  - RENAL FAILURE [None]
